FAERS Safety Report 20297874 (Version 1)
Quarter: 2022Q1

REPORT INFORMATION
  Report Type: Spontaneous
  Country: NL (occurrence: NL)
  Receive Date: 20220105
  Receipt Date: 20220105
  Transmission Date: 20220423
  Serious: Yes (Other)
  Sender: FDA-Public Use
  Company Number: None

PATIENT
  Age: 79 Year
  Sex: Female
  Weight: 53 kg

DRUGS (6)
  1. DOXYCYCLINE [Interacting]
     Active Substance: DOXYCYCLINE
     Indication: Osteitis
     Dosage: 1 DF; THERAPY END DATE: ASKU; DOXYCYCLINE TABLET 100MG / BRAND NAME NOT SPECIFIED
     Dates: start: 20211202
  2. BISOPROLOL [Concomitant]
     Active Substance: BISOPROLOL
     Dosage: THERAPY START AND END DATE: ASKU; BISOPROLOL FUMARATE / BRAND NAME NOT SPECIFIED
  3. ATORVASTATIN [Concomitant]
     Active Substance: ATORVASTATIN
     Dosage: THERAPY START AND END DATE: ASKU; ATORVASTATIN TABLET 10MG / BRAND NAME NOT SPECIFIED
  4. XARELTO [Concomitant]
     Active Substance: RIVAROXABAN
     Dosage: THERAPY START AND END DATE: ASKU; RIVAROXABAN TABLET 10MG / XARELTO TABLET FILM COATED 10MG
  5. FLECAINIDE [Concomitant]
     Active Substance: FLECAINIDE
     Dosage: THERAPY START AND END DATE: ASKU; FLECAINIDE TABLET 50MG / BRAND NAME NOT SPECIFIED
  6. PANTOPRAZOLE SODIUM [Concomitant]
     Active Substance: PANTOPRAZOLE SODIUM
     Dosage: THERAPY START AND END DATE: ASKU; PANTOPRAZOL TABLET MSR 20MG / BRAND NAME NOT SPECIFIED

REACTIONS (8)
  - Arrhythmia [Not Recovered/Not Resolved]
  - Drug interaction [Unknown]
  - Chills [Recovering/Resolving]
  - Chest discomfort [Not Recovered/Not Resolved]
  - Malaise [Not Recovered/Not Resolved]
  - Headache [Not Recovered/Not Resolved]
  - Nausea [Recovering/Resolving]
  - Fatigue [Not Recovered/Not Resolved]

NARRATIVE: CASE EVENT DATE: 20211209
